FAERS Safety Report 4887704-1 (Version None)
Quarter: 2006Q1

REPORT INFORMATION
  Report Type: 
  Country: None (occurrence: None)
  Receive Date: 20060118
  Receipt Date: 20051229
  Transmission Date: 20060701
  Serious: Yes (Hospitalization)
  Sender: FDA-Public Use
  Company Number: 2005-DE-05686GD

PATIENT
  Age: 32 Year
  Sex: Female

DRUGS (3)
  1. DIPYRONE TAB [Suspect]
     Indication: BACK PAIN
     Dosage: 2000 MG (500 MG, 4 TIMES DAILY), PO
     Route: 048
  2. DICLOFENAC (DICLOFENAC) [Suspect]
     Indication: BACK PAIN
     Dosage: 100 MG (, TWICE DAILY), PO
     Route: 048
  3. TRAMADOL HCL [Suspect]
     Indication: BACK PAIN
     Dosage: 100 MG OR 150 MG (TWICE OR THRICE DAILY),

REACTIONS (14)
  - ABDOMINAL ADHESIONS [None]
  - ADENOCARCINOMA [None]
  - BACK PAIN [None]
  - DRUG INEFFECTIVE [None]
  - INTESTINAL OBSTRUCTION [None]
  - MALIGNANT NEOPLASM PROGRESSION [None]
  - MASS [None]
  - METASTASES TO LIVER [None]
  - PAIN [None]
  - PELVIC ABSCESS [None]
  - RECTAL CANCER [None]
  - REFUSAL OF TREATMENT BY PATIENT [None]
  - SECRETION DISCHARGE [None]
  - TUMOUR NECROSIS [None]
